FAERS Safety Report 7427678-2 (Version None)
Quarter: 2011Q1

REPORT INFORMATION
  Report Type: 
  Country: None (occurrence: None)
  Receive Date: 20110302
  Receipt Date: 20101221
  Transmission Date: 20110831
  Serious: No
  Sender: FDA-Public Use
  Company Number: 010377

PATIENT
  Sex: Female

DRUGS (4)
  1. CIMZIA [Suspect]
  2. CIMZIA [Suspect]
     Indication: CROHN'S DISEASE
     Dosage: (SUBCUTANEOUS), (SUBCUTANEOUS), (200 MG 1X/2 WEEKS SUBCUTANEOUS)
     Route: 058
     Dates: start: 20090818
  3. CIMZIA [Suspect]
  4. CIMZIA [Suspect]

REACTIONS (3)
  - DYSPHAGIA [None]
  - ABDOMINAL PAIN [None]
  - FATIGUE [None]
